FAERS Safety Report 18284038 (Version 1)
Quarter: 2020Q3

REPORT INFORMATION
  Report Type: Spontaneous
  Country: AU (occurrence: AU)
  Receive Date: 20200918
  Receipt Date: 20200918
  Transmission Date: 20201103
  Serious: Yes (Other)
  Sender: FDA-Public Use
  Company Number: AU-MACLEODS PHARMACEUTICALS US LTD-MAC2020027973

PATIENT

DRUGS (8)
  1. TRAMADOL. [Suspect]
     Active Substance: TRAMADOL
     Dosage: 8 DOSAGE FORM OF THE 50 MG
     Route: 065
  2. TRAMADOL. [Suspect]
     Active Substance: TRAMADOL
     Dosage: 50 MILLIGRAM, TID, IMMEDIATE RELEASE TABLETS, ONE TO TWO AS NECESSARY
     Route: 065
  3. ESCITALOPRAM [Suspect]
     Active Substance: ESCITALOPRAM OXALATE
     Indication: PRODUCT USED FOR UNKNOWN INDICATION
     Dosage: UNK, TWO YEARS PRIOR TO OFFENDING
     Route: 065
  4. TRAMADOL. [Suspect]
     Active Substance: TRAMADOL
     Indication: PRODUCT USED FOR UNKNOWN INDICATION
     Dosage: UNK, 2 YEARS PRIOR
     Route: 065
  5. DESVENLAFAXINE. [Suspect]
     Active Substance: DESVENLAFAXINE
     Indication: DEPRESSION
     Dosage: 50 MILLIGRAM, QD
     Route: 065
  6. DESVENLAFAXINE. [Suspect]
     Active Substance: DESVENLAFAXINE
     Dosage: 100?150 MG
     Route: 065
  7. TRAMADOL. [Suspect]
     Active Substance: TRAMADOL
     Dosage: 100 MILLIGRAM, BID, SLOW RELEASE TABLET
     Route: 065
  8. TRAMADOL. [Suspect]
     Active Substance: TRAMADOL
     Dosage: 3 DOSAGE FORM OF 100 MG SLOW RELEASE TABLETS
     Route: 065

REACTIONS (5)
  - Treatment noncompliance [Unknown]
  - Drug abuse [Unknown]
  - Substance-induced psychotic disorder [Recovered/Resolved]
  - Intentional overdose [Unknown]
  - Psychotic disorder [Recovered/Resolved]
